FAERS Safety Report 5834752-0 (Version None)
Quarter: 2008Q3

REPORT INFORMATION
  Report Type: 
  Country: None (occurrence: None)
  Receive Date: 20080801
  Receipt Date: 20080729
  Transmission Date: 20090109
  Serious: Yes (Death, Other)
  Sender: FDA-Public Use
  Company Number: 2008-02780

PATIENT
  Age: 60 Year
  Sex: Female
  Weight: 54 kg

DRUGS (4)
  1. VELCADE [Suspect]
     Indication: MULTIPLE MYELOMA
     Dosage: 2 MG/M2,  INTRAVENOUS
     Route: 042
     Dates: start: 20080401, end: 20080513
  2. FAMOTIDINE [Concomitant]
  3. ALLOPURINOL [Concomitant]
  4. MUCOSTA (REBAMIPIDE) [Concomitant]

REACTIONS (3)
  - DISEASE PROGRESSION [None]
  - MULTIPLE MYELOMA [None]
  - VARICELLA [None]
